FAERS Safety Report 8780498 (Version 2)
Quarter: 2012Q4

REPORT INFORMATION
  Report Type: Spontaneous
  Country: US (occurrence: None)
  Receive Date: 20120828
  Receipt Date: 20120905
  Transmission Date: 20130627
  Serious: Yes (Congenital Anomaly)
  Sender: FDA-Public Use
  Company Number: KV201200158

PATIENT
  Sex: Female

DRUGS (1)
  1. MAKENA [Suspect]
     Indication: MATERNAL EXPOSURE DURING PREGNANCY

REACTIONS (5)
  - Palpitations [None]
  - Exposure during pregnancy [None]
  - Abortion induced [None]
  - Ebstein^s anomaly [None]
  - Ventricular septal defect [None]
